FAERS Safety Report 18374850 (Version 4)
Quarter: 2020Q4

REPORT INFORMATION
  Report Type: Spontaneous
  Country: US (occurrence: US)
  Receive Date: 20201012
  Receipt Date: 20201029
  Transmission Date: 20210114
  Serious: Yes (Other)
  Sender: FDA-Public Use
  Company Number: US-SPECGX-T202002013

PATIENT
  Sex: Female
  Weight: 53 kg

DRUGS (4)
  1. HYDROCODONE/ACETAMINOPHEN [Suspect]
     Active Substance: ACETAMINOPHEN\HYDROCODONE
     Indication: INTERVERTEBRAL DISC DEGENERATION
     Dosage: UNK, 7.5 MG, 2.5 PILLS A DAY (DECREASED DOSE)
     Route: 065
  2. HYDROCODONE/ACETAMINOPHEN [Suspect]
     Active Substance: ACETAMINOPHEN\HYDROCODONE
     Indication: PAIN
  3. HYDROCODONE/ACETAMINOPHEN [Suspect]
     Active Substance: ACETAMINOPHEN\HYDROCODONE
     Indication: PAIN
     Dosage: UNK, FIVE TABLETS A DAY
     Route: 048
  4. HYDROCODONE/ACETAMINOPHEN [Suspect]
     Active Substance: ACETAMINOPHEN\HYDROCODONE
     Indication: INTERVERTEBRAL DISC DEGENERATION
     Dosage: UNK
     Route: 065
     Dates: start: 2018

REACTIONS (10)
  - Condition aggravated [Recovered/Resolved]
  - Drug interaction [Unknown]
  - Therapeutic response shortened [Unknown]
  - Feeling jittery [Recovered/Resolved]
  - Therapeutic response delayed [Unknown]
  - Costochondritis [Recovering/Resolving]
  - Hepatic enzyme increased [Recovered/Resolved]
  - Bronchitis [Recovered/Resolved]
  - Arthritis [Recovering/Resolving]
  - Chest discomfort [Recovered/Resolved]

NARRATIVE: CASE EVENT DATE: 2018
